FAERS Safety Report 8560348-6 (Version None)
Quarter: 2012Q3

REPORT INFORMATION
  Report Type: 
  Country: None (occurrence: None)
  Receive Date: 20120802
  Receipt Date: 20120724
  Transmission Date: 20120928
  Serious: Yes (Other)
  Sender: FDA-Public Use
  Company Number: JP-ROCHE-1092436

PATIENT
  Age: 81 Year
  Sex: Male

DRUGS (1)
  1. XELODA [Suspect]
     Indication: COLON CANCER
     Dosage: DOSAGE IS UNCERTAIN, STRENGTH : 300
     Route: 048
     Dates: start: 20120601

REACTIONS (2)
  - OPTIC NERVE DISORDER [None]
  - VISUAL ACUITY REDUCED [None]
